FAERS Safety Report 10596935 (Version 3)
Quarter: 2016Q2

REPORT INFORMATION
  Report Type: Report from Study
  Country: US (occurrence: US)
  Receive Date: 20141120
  Receipt Date: 20160609
  Transmission Date: 20160815
  Serious: Yes (Hospitalization)
  Sender: FDA-Public Use
  Company Number: US-ARIAD-2014US003136

PATIENT

DRUGS (2)
  1. ICLUSIG [Suspect]
     Active Substance: PONATINIB
     Indication: CHRONIC MYELOID LEUKAEMIA
     Dosage: 45 MG, QD
     Route: 048
     Dates: start: 20140128
  2. ICLUSIG [Suspect]
     Active Substance: PONATINIB
     Dosage: UNK

REACTIONS (3)
  - Muscle spasms [Unknown]
  - Cerebrovascular accident [Unknown]
  - Headache [Unknown]
